FAERS Safety Report 5902561-X (Version None)
Quarter: 2008Q3

REPORT INFORMATION
  Report Type: 
  Country: None (occurrence: None)
  Receive Date: 20080929
  Receipt Date: 20080926
  Transmission Date: 20090109
  Serious: Yes (Life-Threatening, Hospitalization, Other)
  Sender: FDA-Public Use
  Company Number: JP-ABBOTT-08P-087-0478380-00

PATIENT
  Age: 85 Year
  Sex: Female
  Weight: 48 kg

DRUGS (14)
  1. CLARITH TABLETS [Suspect]
     Indication: BRONCHITIS CHRONIC
     Route: 048
     Dates: start: 20071201, end: 20080410
  2. FLECAINIDE ACETATE [Suspect]
     Indication: SUPRAVENTRICULAR EXTRASYSTOLES
     Route: 048
     Dates: start: 20080405, end: 20080410
  3. METILDIGOXIN [Suspect]
     Indication: SUPRAVENTRICULAR EXTRASYSTOLES
     Route: 048
     Dates: start: 20080405, end: 20080410
  4. AMIODARONE HCL [Suspect]
     Indication: VENTRICULAR TACHYCARDIA
     Route: 040
     Dates: start: 20080410, end: 20080410
  5. AMIODARONE HCL [Suspect]
     Dosage: 25 MG/HR FOR 18 HOURS
     Route: 042
     Dates: start: 20080410, end: 20080411
  6. MEQUITAZINE [Concomitant]
     Indication: DRUG USE FOR UNKNOWN INDICATION
     Route: 048
     Dates: end: 20080410
  7. THEOPHYLLINE [Concomitant]
     Indication: BRONCHITIS CHRONIC
     Route: 048
     Dates: end: 20080410
  8. VALSARTAN [Concomitant]
     Indication: HYPERTENSION
     Route: 048
     Dates: end: 20080410
  9. FUROSEMIDE [Concomitant]
     Indication: DRUG USE FOR UNKNOWN INDICATION
     Route: 048
     Dates: end: 20080410
  10. TULOBUTEROL [Concomitant]
     Indication: BRONCHITIS CHRONIC
     Route: 061
     Dates: end: 20080410
  11. BETAHISTINE MESILATE [Concomitant]
     Indication: DIZZINESS
     Route: 048
     Dates: end: 20080410
  12. DOMPERIDONE [Concomitant]
     Indication: DRUG USE FOR UNKNOWN INDICATION
     Route: 048
     Dates: end: 20080410
  13. IFENPRODIL TARTRATE [Concomitant]
     Indication: DIZZINESS
     Route: 048
     Dates: end: 20080410
  14. ALFACALCIDOL [Concomitant]
     Indication: OSTEOPOROSIS
     Route: 048
     Dates: end: 20080410

REACTIONS (7)
  - BRADYCARDIA [None]
  - ELECTROCARDIOGRAM QT PROLONGED [None]
  - FALL [None]
  - SUPRAVENTRICULAR EXTRASYSTOLES [None]
  - SYNCOPE [None]
  - VENTRICULAR FIBRILLATION [None]
  - VENTRICULAR TACHYCARDIA [None]
